FAERS Safety Report 8912371 (Version 3)
Quarter: 2013Q1

REPORT INFORMATION
  Report Type: Spontaneous
  Country: JP (occurrence: JP)
  Receive Date: 20121116
  Receipt Date: 20130329
  Transmission Date: 20140127
  Serious: Yes (Hospitalization, Other)
  Sender: FDA-Public Use
  Company Number: JP-TEVA-370525USA

PATIENT
  Age: 69 Year
  Sex: Male

DRUGS (6)
  1. TREANDA [Suspect]
     Indication: LYMPHOPLASMACYTOID LYMPHOMA/IMMUNOCYTOMA
     Dosage: UID/QD
     Route: 042
     Dates: start: 20111025, end: 20111026
  2. TREANDA [Suspect]
     Dosage: UID/QD
     Route: 042
     Dates: start: 20120120, end: 20120121
  3. PALONOSETRON HYDROCHLORIDE [Concomitant]
     Indication: PROPHYLAXIS OF NAUSEA AND VOMITING
     Dosage: .75 MILLIGRAM DAILY;
     Dates: start: 20111025, end: 20120120
  4. FILGRASTIM [Concomitant]
     Dosage: 75 MICROGRAM DAILY;
     Dates: start: 20111102, end: 20120205
  5. ACICLOVIR [Concomitant]
     Indication: INFECTION PROPHYLAXIS
     Dosage: 200 MILLIGRAM DAILY;
     Dates: start: 20111024
  6. SULFAMETHOXAZOLE W/TRIMETHOPRIM [Concomitant]
     Indication: INFECTION PROPHYLAXIS
     Dates: start: 20111024

REACTIONS (22)
  - Bacteraemia [Recovered/Resolved]
  - Monocyte count increased [Unknown]
  - Weight increased [Recovered/Resolved]
  - Blood alkaline phosphatase increased [Recovered/Resolved]
  - Febrile neutropenia [Recovered/Resolved]
  - Cytomegalovirus test [Recovering/Resolving]
  - Red blood cell count decreased [Recovered/Resolved]
  - Haemoglobin decreased [Recovered/Resolved]
  - White blood cell count decreased [Recovered/Resolved]
  - Neutrophil count decreased [Recovered/Resolved]
  - Lymphocyte count decreased [Unknown]
  - Platelet count decreased [Recovered/Resolved]
  - Nausea [Recovered/Resolved]
  - Vomiting [Recovered/Resolved]
  - Decreased appetite [Recovered/Resolved]
  - Diarrhoea [Recovered/Resolved]
  - Pyrexia [Recovered/Resolved]
  - Abdominal distension [Recovered/Resolved]
  - Aspartate aminotransferase increased [Recovered/Resolved]
  - Alanine aminotransferase [Recovered/Resolved]
  - Dysgeusia [Recovered/Resolved]
  - Drug ineffective [Unknown]
